FAERS Safety Report 6200199-0 (Version None)
Quarter: 2009Q2

REPORT INFORMATION
  Report Type: 
  Country: None (occurrence: None)
  Receive Date: 20090522
  Receipt Date: 20090512
  Transmission Date: 20091009
  Serious: Yes (Other)
  Sender: FDA-Public Use
  Company Number: US-PFIZER INC-2009212797

PATIENT
  Sex: Female

DRUGS (4)
  1. CHANTIX [Suspect]
     Indication: SMOKING CESSATION THERAPY
     Dosage: 0.5 MG, 1X/DAY
     Route: 048
     Dates: start: 20090430
  2. PROMETHAZINE [Concomitant]
     Indication: NAUSEA
     Dosage: FREQUENCY: 6X/DAY
  3. METHADONE [Concomitant]
     Dosage: UNK
  4. OXYCODONE [Concomitant]
     Dosage: 5 MG 8X/DAY

REACTIONS (2)
  - LACK OF SPONTANEOUS SPEECH [None]
  - LOSS OF CONSCIOUSNESS [None]
